FAERS Safety Report 12412718 (Version 1)
Quarter: 2016Q2

REPORT INFORMATION
  Report Type: Spontaneous
  Country: US (occurrence: US)
  Receive Date: 20160527
  Receipt Date: 20160527
  Transmission Date: 20160815
  Serious: No
  Sender: FDA-Public Use
  Company Number: US-TEIKOKU PHARMA USA-TPU2016-00329

PATIENT
  Sex: Female
  Weight: 131.66 kg

DRUGS (3)
  1. ZOLOFT [Concomitant]
     Active Substance: SERTRALINE HYDROCHLORIDE
     Indication: DEPRESSION
     Route: 048
     Dates: start: 1996
  2. LIDODERM [Suspect]
     Active Substance: LIDOCAINE
     Indication: PAIN MANAGEMENT
     Dosage: 2 PATCHES CUT INTO 3RD APPLIED TO NECK AND LOWER BACK
     Route: 061
     Dates: start: 1997
  3. PAXIL [Suspect]
     Active Substance: PAROXETINE HYDROCHLORIDE
     Indication: DEPRESSION

REACTIONS (4)
  - Expired product administered [Unknown]
  - Weight increased [Not Recovered/Not Resolved]
  - Incorrect drug administration duration [Not Recovered/Not Resolved]
  - Intervertebral disc disorder [Unknown]

NARRATIVE: CASE EVENT DATE: 2003
